FAERS Safety Report 15782276 (Version 2)
Quarter: 2019Q4

REPORT INFORMATION
  Report Type: Report from Study
  Country: CO (occurrence: CO)
  Receive Date: 20190102
  Receipt Date: 20191004
  Transmission Date: 20200122
  Serious: Yes (Hospitalization, Other)
  Sender: FDA-Public Use
  Company Number: CO-EMD SERONO-9058758

PATIENT
  Age: 9 Year
  Sex: Female

DRUGS (1)
  1. SAIZEN [Suspect]
     Active Substance: SOMATROPIN
     Indication: DEVELOPMENTAL DELAY
     Route: 058
     Dates: start: 20151104, end: 20180915

REACTIONS (3)
  - Calculus bladder [Unknown]
  - Dysgnathia [Recovering/Resolving]
  - Off label use [Unknown]

NARRATIVE: CASE EVENT DATE: 20151104
